FAERS Safety Report 4916476-7 (Version None)
Quarter: 2006Q1

REPORT INFORMATION
  Report Type: 
  Country: None (occurrence: None)
  Receive Date: 20060214
  Receipt Date: 20060202
  Transmission Date: 20060701
  Serious: No
  Sender: FDA-Public Use
  Company Number: 06H-056-0304890-00

PATIENT
  Sex: Female

DRUGS (1)
  1. PENTOTHAL [Suspect]
     Indication: ANAESTHESIA

REACTIONS (1)
  - PULMONARY OEDEMA [None]
